FAERS Safety Report 8029545-2 (Version None)
Quarter: 2012Q1

REPORT INFORMATION
  Report Type: 
  Country: None (occurrence: None)
  Receive Date: 20120109
  Receipt Date: 20120106
  Transmission Date: 20120608
  Serious: No
  Sender: FDA-Public Use
  Company Number: US-PFIZER INC-2012004857

PATIENT
  Sex: Female
  Weight: 93 kg

DRUGS (6)
  1. SINGULAIR [Concomitant]
     Indication: ASTHMA
     Dosage: UNK
  2. ZOLOFT [Suspect]
     Indication: PAIN
     Dosage: UNK
     Route: 048
  3. TOPAMAX [Concomitant]
     Dosage: UNK
  4. XANAX [Concomitant]
     Dosage: UNK
  5. ZOLOFT [Suspect]
     Indication: MENTAL DISORDER
     Dosage: 150 MG, 1X/DAY
     Route: 048
  6. VISTARIL [Concomitant]
     Dosage: UNK

REACTIONS (1)
  - DRUG INEFFECTIVE [None]
